FAERS Safety Report 24796686 (Version 2)
Quarter: 2025Q1

REPORT INFORMATION
  Report Type: Spontaneous
  Country: US (occurrence: US)
  Receive Date: 20250101
  Receipt Date: 20250121
  Transmission Date: 20250409
  Serious: Yes (Other)
  Sender: ORGANON
  Company Number: US-ORGANON-O2412USA002734

PATIENT
  Sex: Female

DRUGS (3)
  1. SINGULAIR [Suspect]
     Active Substance: MONTELUKAST SODIUM
     Indication: Asthma
     Route: 048
     Dates: start: 20181231
  2. SINGULAIR [Suspect]
     Active Substance: MONTELUKAST SODIUM
     Indication: Nasal congestion
     Route: 048
     Dates: start: 20190509, end: 20210528
  3. SINGULAIR [Suspect]
     Active Substance: MONTELUKAST SODIUM
     Indication: Rhinorrhoea

REACTIONS (19)
  - Tourette^s disorder [Unknown]
  - Thyroglossal cyst [Unknown]
  - Thyroid mass [Unknown]
  - Disturbance in attention [Unknown]
  - Dark circles under eyes [Unknown]
  - Urinary incontinence [Recovering/Resolving]
  - Initial insomnia [Unknown]
  - Fatigue [Unknown]
  - Sinusitis [Unknown]
  - Abdominal pain [Unknown]
  - Emotional disorder [Unknown]
  - Hypersensitivity [Unknown]
  - Cough [Not Recovered/Not Resolved]
  - Anxiety [Unknown]
  - Drug ineffective [Unknown]
  - Palpitations [Unknown]
  - Asthma [Not Recovered/Not Resolved]
  - Urticaria [Unknown]
  - Back disorder [Recovering/Resolving]

NARRATIVE: CASE EVENT DATE: 20181201
